FAERS Safety Report 4713297-5 (Version None)
Quarter: 2005Q3

REPORT INFORMATION
  Report Type: 
  Country: None (occurrence: None)
  Receive Date: 20050713
  Receipt Date: 20050603
  Transmission Date: 20060218
  Serious: Yes (Hospitalization, Other)
  Sender: FDA-Public Use
  Company Number: PHBS2005CA08120

PATIENT
  Age: 45 Year
  Sex: Female

DRUGS (9)
  1. CLOZARIL [Suspect]
     Indication: SCHIZOPHRENIA
     Dosage: 450 MG/D
     Route: 048
  2. ZOLOFT [Concomitant]
  3. TRAZODONE [Concomitant]
  4. CLONAZEPAM [Concomitant]
  5. NEURONTIN [Concomitant]
  6. KEMADRIN [Concomitant]
  7. ASPIRIN [Concomitant]
  8. SENOKOT [Concomitant]
  9. CORGARD [Concomitant]

REACTIONS (3)
  - BLOOD CREATINE PHOSPHOKINASE INCREASED [None]
  - FEELING ABNORMAL [None]
  - VIRAL MYOSITIS [None]
